FAERS Safety Report 4274620-1 (Version None)
Quarter: 2004Q1

REPORT INFORMATION
  Report Type: 
  Country: None (occurrence: None)
  Receive Date: 20040120
  Receipt Date: 20040120
  Transmission Date: 20041129
  Serious: Yes (Death)
  Sender: FDA-Public Use
  Company Number: None

PATIENT
  Age: 75 Year
  Sex: Female

DRUGS (13)
  1. PLAVIX [Suspect]
     Dates: start: 20031101, end: 20031212
  2. CELEBREX [Concomitant]
  3. CORDARONE [Concomitant]
  4. PREDNISONE [Concomitant]
  5. ZOCOR [Concomitant]
  6. CAPOTEN [Concomitant]
  7. TRENTAL [Concomitant]
  8. FOSAMAX [Concomitant]
  9. PROTONIX [Concomitant]
  10. DEMADEX [Concomitant]
  11. ASPIRIN [Concomitant]
  12. ATROVENT [Concomitant]
  13. MACROBID [Concomitant]

REACTIONS (9)
  - CONTUSION [None]
  - DEEP VEIN THROMBOSIS [None]
  - EMPHYSEMA [None]
  - GASTROINTESTINAL HAEMORRHAGE [None]
  - HYPERKALAEMIA [None]
  - INCISION SITE HAEMORRHAGE [None]
  - PNEUMONIA [None]
  - PULMONARY EMBOLISM [None]
  - RENAL FAILURE [None]
